FAERS Safety Report 4414302-6 (Version None)
Quarter: 2004Q3

REPORT INFORMATION
  Report Type: 
  Country: None (occurrence: None)
  Receive Date: 20040729
  Receipt Date: 20040714
  Transmission Date: 20050211
  Serious: Yes (Hospitalization)
  Sender: FDA-Public Use
  Company Number: 2004-03145

PATIENT
  Age: 56 Year
  Sex: Male

DRUGS (5)
  1. DIPHENHYDRAMINE HYDROCHLORIDE (WATSON LABORATORIES(DIPHENHYDRAMINE HYD [Suspect]
     Indication: PRURITUS
     Dosage: 50 MG, Q4H X 2 DAYS, INTRAVENOUS
     Route: 042
  2. DIPHENHYDRAMINE HYDROCHLORIDE (WATSON LABORATORIES(DIPHENHYDRAMINE HYD [Suspect]
     Indication: RASH
     Dosage: 50 MG, Q4H X 2 DAYS, INTRAVENOUS
     Route: 042
  3. LINEZOLID (LINEZOLID) [Suspect]
     Indication: OSTEOMYELITIS
     Dosage: 600MG Q12H
  4. METRONIDAZOLE [Concomitant]
  5. AZTREONAM (AZTREONAM) [Concomitant]

REACTIONS (3)
  - AGGRESSION [None]
  - DELIRIUM [None]
  - DRUG INTERACTION [None]
